FAERS Safety Report 14240945 (Version 2)
Quarter: 2017Q4

REPORT INFORMATION
  Report Type: Spontaneous
  Country: US (occurrence: US)
  Receive Date: 20171130
  Receipt Date: 20171218
  Transmission Date: 20180321
  Serious: Yes (Death, Hospitalization)
  Sender: FDA-Public Use
  Company Number: US-ACTELION-A-US2017-163067

PATIENT
  Age: 56 Year
  Sex: Female

DRUGS (1)
  1. OPSUMIT [Suspect]
     Active Substance: MACITENTAN
     Indication: PULMONARY ARTERIAL HYPERTENSION
     Dosage: 10 MG, UNK
     Route: 048
     Dates: start: 2014, end: 20171009

REACTIONS (8)
  - Hypoxia [Unknown]
  - Pulmonary arterial hypertension [Fatal]
  - Fluid retention [Unknown]
  - Right ventricular failure [Unknown]
  - Hepatic cirrhosis [Fatal]
  - Hypotension [Unknown]
  - Anaemia [Fatal]
  - Disease progression [Fatal]
